FAERS Safety Report 21201544 (Version 1)
Quarter: 2022Q3

REPORT INFORMATION
  Report Type: Spontaneous
  Country: CN (occurrence: CN)
  Receive Date: 20220811
  Receipt Date: 20220811
  Transmission Date: 20221026
  Serious: Yes (Other)
  Sender: FDA-Public Use
  Company Number: CN-009507513-2208CHN003811

PATIENT
  Age: 57 Year
  Sex: Male

DRUGS (26)
  1. CILASTATIN SODIUM\IMIPENEM [Suspect]
     Active Substance: CILASTATIN SODIUM\IMIPENEM
     Indication: Abdominal infection
     Dosage: 500 MG, Q6H
     Route: 041
     Dates: start: 20220705, end: 20220728
  2. CILASTATIN SODIUM\IMIPENEM [Suspect]
     Active Substance: CILASTATIN SODIUM\IMIPENEM
     Indication: Septic shock
  3. CILASTATIN SODIUM\IMIPENEM [Suspect]
     Active Substance: CILASTATIN SODIUM\IMIPENEM
     Indication: Pancreatitis acute
  4. CILASTATIN SODIUM\IMIPENEM [Suspect]
     Active Substance: CILASTATIN SODIUM\IMIPENEM
     Indication: Multiple organ dysfunction syndrome
  5. CILASTATIN SODIUM\IMIPENEM [Suspect]
     Active Substance: CILASTATIN SODIUM\IMIPENEM
     Indication: Acute respiratory distress syndrome
  6. CILASTATIN SODIUM\IMIPENEM [Suspect]
     Active Substance: CILASTATIN SODIUM\IMIPENEM
     Indication: Pneumonia
  7. CILASTATIN SODIUM\IMIPENEM [Suspect]
     Active Substance: CILASTATIN SODIUM\IMIPENEM
     Indication: Acute kidney injury
  8. CILASTATIN SODIUM\IMIPENEM [Suspect]
     Active Substance: CILASTATIN SODIUM\IMIPENEM
     Indication: Delirium
  9. CILASTATIN SODIUM\IMIPENEM [Suspect]
     Active Substance: CILASTATIN SODIUM\IMIPENEM
     Indication: Gastric mucosal lesion
  10. CILASTATIN SODIUM\IMIPENEM [Suspect]
     Active Substance: CILASTATIN SODIUM\IMIPENEM
     Indication: Peripheral arterial occlusive disease
  11. CILASTATIN SODIUM\IMIPENEM [Suspect]
     Active Substance: CILASTATIN SODIUM\IMIPENEM
     Indication: Venous thrombosis limb
  12. CILASTATIN SODIUM\IMIPENEM [Suspect]
     Active Substance: CILASTATIN SODIUM\IMIPENEM
     Indication: Anaemia
  13. CILASTATIN SODIUM\IMIPENEM [Suspect]
     Active Substance: CILASTATIN SODIUM\IMIPENEM
     Indication: Hypoalbuminaemia
  14. DEXTROSE [Concomitant]
     Active Substance: DEXTROSE
     Indication: Abdominal infection
     Dosage: 100ML, Q6H
     Route: 041
     Dates: start: 20220705
  15. DEXTROSE [Concomitant]
     Active Substance: DEXTROSE
     Indication: Septic shock
  16. DEXTROSE [Concomitant]
     Active Substance: DEXTROSE
     Indication: Pancreatitis acute
  17. DEXTROSE [Concomitant]
     Active Substance: DEXTROSE
     Indication: Multiple organ dysfunction syndrome
  18. DEXTROSE [Concomitant]
     Active Substance: DEXTROSE
     Indication: Acute respiratory distress syndrome
  19. DEXTROSE [Concomitant]
     Active Substance: DEXTROSE
     Indication: Pneumonia
  20. DEXTROSE [Concomitant]
     Active Substance: DEXTROSE
     Indication: Acute kidney injury
  21. DEXTROSE [Concomitant]
     Active Substance: DEXTROSE
     Indication: Delirium
  22. DEXTROSE [Concomitant]
     Active Substance: DEXTROSE
     Indication: Gastric mucosal lesion
  23. DEXTROSE [Concomitant]
     Active Substance: DEXTROSE
     Indication: Peripheral arterial occlusive disease
  24. DEXTROSE [Concomitant]
     Active Substance: DEXTROSE
     Indication: Venous thrombosis limb
  25. DEXTROSE [Concomitant]
     Active Substance: DEXTROSE
     Indication: Anaemia
  26. DEXTROSE [Concomitant]
     Active Substance: DEXTROSE
     Indication: Hypoalbuminaemia

REACTIONS (2)
  - Delirium [Recovering/Resolving]
  - Disorganised speech [Unknown]

NARRATIVE: CASE EVENT DATE: 20220720
